FAERS Safety Report 17101752 (Version 1)
Quarter: 2019Q4

REPORT INFORMATION
  Report Type: Spontaneous
  Country: DE (occurrence: DE)
  Receive Date: 20191202
  Receipt Date: 20191202
  Transmission Date: 20200122
  Serious: Yes (Other)
  Sender: FDA-Public Use
  Company Number: DE-NOVOPROD-698081

PATIENT
  Age: 58 Year
  Sex: Female
  Weight: 104 kg

DRUGS (8)
  1. LIMPTAR [Concomitant]
     Active Substance: AMINOPHYLLINE\QUININE SULFATE
     Dosage: UNK (APPLICATION WHEN NEEDED)
     Route: 065
  2. FORXIGA [Concomitant]
     Active Substance: DAPAGLIFLOZIN
     Dosage: 10 MG, QD
     Route: 065
  3. RESTEX [Concomitant]
     Active Substance: BENSERAZIDE\LEVODOPA
     Dosage: UNK (APPLICATION WHEN NEEDED)
     Route: 065
  4. VALSARTAN. [Concomitant]
     Active Substance: VALSARTAN
     Dosage: 1 DF, QD (80 MG/6.25 MG)
     Route: 065
  5. JODID [Concomitant]
     Active Substance: IODINE
     Dosage: 200 ?G, QD
     Route: 065
  6. NEBIVOLOL. [Concomitant]
     Active Substance: NEBIVOLOL
     Dosage: 2.5 MG, QD
     Route: 065
  7. VICTOZA [Suspect]
     Active Substance: LIRAGLUTIDE
     Indication: TYPE 2 DIABETES MELLITUS
     Dosage: 1.2 MG, QD
     Route: 065
  8. METFORMIN [Concomitant]
     Active Substance: METFORMIN HYDROCHLORIDE
     Dosage: 1000 MG, QD (EVERY DAYS 2 SEPARATED DOSES)
     Route: 065

REACTIONS (2)
  - Tubulointerstitial nephritis [Recovering/Resolving]
  - Renal failure [Recovering/Resolving]

NARRATIVE: CASE EVENT DATE: 20190723
